FAERS Safety Report 21589432 (Version 2)
Quarter: 2022Q4

REPORT INFORMATION
  Report Type: Spontaneous
  Country: US (occurrence: US)
  Receive Date: 20221114
  Receipt Date: 20221121
  Transmission Date: 20230113
  Serious: No
  Sender: FDA-Public Use
  Company Number: US-PFIZER INC-202201292671

PATIENT
  Age: 88 Year
  Sex: Male
  Weight: 81.65 kg

DRUGS (1)
  1. PAXLOVID [Suspect]
     Active Substance: NIRMATRELVIR\RITONAVIR
     Indication: COVID-19 treatment
     Dosage: UNK (TOOK A TOTAL OF SIX TABLETS)
     Dates: start: 20221108

REACTIONS (9)
  - Breath odour [Unknown]
  - Tongue discolouration [Unknown]
  - Dysgeusia [Unknown]
  - Dysphagia [Unknown]
  - Abdominal discomfort [Unknown]
  - Lip swelling [Unknown]
  - Mouth swelling [Unknown]
  - Oral discomfort [Unknown]
  - Oral pain [Unknown]

NARRATIVE: CASE EVENT DATE: 20221101
